FAERS Safety Report 25299658 (Version 1)
Quarter: 2025Q2

REPORT INFORMATION
  Report Type: Spontaneous
  Country: PL (occurrence: PL)
  Receive Date: 20250512
  Receipt Date: 20250512
  Transmission Date: 20250716
  Serious: Yes (Other)
  Sender: MYLAN
  Company Number: PL-LESVI-2023005948

PATIENT
  Age: 6 Decade
  Sex: Male

DRUGS (6)
  1. GABAPENTIN [Suspect]
     Active Substance: GABAPENTIN
     Indication: Trigeminal neuralgia
  2. PHENYTOIN [Suspect]
     Active Substance: PHENYTOIN
     Indication: Trigeminal neuralgia
     Dosage: 400 MILLIGRAM, QD (PER DAY, 100?100?200 MG)
  3. LAMOTRIGINE [Suspect]
     Active Substance: LAMOTRIGINE
     Indication: Trigeminal neuralgia
  4. LAMOTRIGINE [Suspect]
     Active Substance: LAMOTRIGINE
  5. CARBAMAZEPINE [Suspect]
     Active Substance: CARBAMAZEPINE
     Indication: Trigeminal neuralgia
     Dosage: 100 MILLIGRAM, TID (THREE TIMES DAILY FOR 12 DAYS)
  6. CLONAZEPAM [Suspect]
     Active Substance: CLONAZEPAM
     Indication: Trigeminal neuralgia
     Dosage: 0.5 MILLIGRAM, TID (THREE TIMES DAILY)

REACTIONS (7)
  - Drug ineffective [Unknown]
  - Vision blurred [Unknown]
  - Somnolence [Unknown]
  - Confusional state [Unknown]
  - Dizziness [Unknown]
  - Ataxia [Unknown]
  - Treatment noncompliance [Unknown]
